FAERS Safety Report 6313640-X (Version None)
Quarter: 2009Q3

REPORT INFORMATION
  Report Type: 
  Country: None (occurrence: None)
  Receive Date: 20090818
  Receipt Date: 20090804
  Transmission Date: 20100115
  Serious: Yes (Death)
  Sender: FDA-Public Use
  Company Number: CA-MYLANLABS-2009S1013826

PATIENT
  Sex: Female

DRUGS (2)
  1. CLOZAPINE [Suspect]
     Indication: SCHIZOPHRENIA, PARANOID TYPE
     Dosage: 150MG DAILY TITRATED TO 300MG DAILY
  2. CLOZAPINE [Suspect]
     Dosage: 150MG DAILY TITRATED TO 300MG DAILY

REACTIONS (1)
  - HEPATIC FAILURE [None]
